FAERS Safety Report 26034585 (Version 1)
Quarter: 2025Q4

REPORT INFORMATION
  Report Type: Report from Study
  Country: EU (occurrence: EU)
  Receive Date: 20251112
  Receipt Date: 20251112
  Transmission Date: 20260118
  Serious: Yes (Hospitalization)
  Sender: ROCHE
  Company Number: EU-ML39632-2583033-0

PATIENT
  Age: 45 Year
  Sex: Female
  Weight: 100 kg

DRUGS (20)
  1. OCREVUS [Suspect]
     Active Substance: OCRELIZUMAB
     Indication: Relapsing multiple sclerosis
     Route: 042
     Dates: start: 20200305, end: 20200319
  2. OCREVUS [Suspect]
     Active Substance: OCRELIZUMAB
     Route: 042
     Dates: start: 20200820
  3. CHOLECALCIFEROL [Concomitant]
     Active Substance: CHOLECALCIFEROL
     Indication: Vitamin D deficiency
     Dates: start: 201312
  4. CHOLECALCIFEROL [Concomitant]
     Active Substance: CHOLECALCIFEROL
     Route: 048
  5. IBUPROFEN [Concomitant]
     Active Substance: IBUPROFEN
     Indication: Pain
     Dosage: DEFINITION OF THE INTERVAL: AS REQUIRED
     Route: 048
  6. CANDESARTAN [Concomitant]
     Active Substance: CANDESARTAN
     Indication: Hypertension
     Dates: start: 201205
  7. CANDESARTAN [Concomitant]
     Active Substance: CANDESARTAN
     Route: 048
  8. Mobilat Intens Salbe [Concomitant]
     Indication: Myalgia
     Dates: start: 2017
  9. Mobilat Intens Salbe [Concomitant]
     Indication: Arthralgia
  10. Vaniqa Creme [Concomitant]
     Indication: Hirsutism
     Dates: start: 2015
  11. Pfizer BioNTech COVID-19-Impfstoff/ Booster [Concomitant]
     Indication: COVID-19 prophylaxis
     Route: 030
     Dates: start: 20211215, end: 20211215
  12. PREDNISOLONE [Concomitant]
     Active Substance: PREDNISOLONE
     Route: 042
     Dates: start: 20231127, end: 20231129
  13. AMITRIPTYLINE HYDROCHLORIDE [Concomitant]
     Active Substance: AMITRIPTYLINE HYDROCHLORIDE
     Indication: Sensory disturbance
     Route: 048
     Dates: start: 20241011
  14. EBASTINE [Concomitant]
     Active Substance: EBASTINE
     Route: 048
     Dates: start: 20200304
  15. Moderna COVID-19-Impfstoff [Concomitant]
     Indication: COVID-19 prophylaxis
     Route: 030
     Dates: start: 20210517, end: 20210517
  16. Moderna COVID-19-Impfstoff [Concomitant]
     Route: 030
     Dates: start: 20210614, end: 20210614
  17. OMEPRAZOLE [Concomitant]
     Active Substance: OMEPRAZOLE
     Route: 048
  18. PREDNISOLONE [Concomitant]
     Active Substance: PREDNISOLONE
     Route: 042
     Dates: start: 20200305
  19. VITAMIN B12 [Concomitant]
     Active Substance: CYANOCOBALAMIN
     Route: 048
     Dates: start: 202402
  20. LYRICA [Concomitant]
     Active Substance: PREGABALIN
     Indication: Neuralgia
     Route: 048
     Dates: start: 202006

REACTIONS (1)
  - Anal fissure [Not Recovered/Not Resolved]

NARRATIVE: CASE EVENT DATE: 20250501
